FAERS Safety Report 6602265-4 (Version None)
Quarter: 2010Q1

REPORT INFORMATION
  Report Type: 
  Country: None (occurrence: None)
  Receive Date: 20100225
  Receipt Date: 20100218
  Transmission Date: 20100710
  Serious: Yes (Death, Life-Threatening, Other)
  Sender: FDA-Public Use
  Company Number: US-BAXTER-2009BH019531

PATIENT
  Age: 74 Year
  Sex: Male

DRUGS (39)
  1. HEPARIN SODIUM INJECTION [Suspect]
     Indication: CATHETERISATION CARDIAC
     Route: 065
     Dates: start: 20071219, end: 20071219
  2. HEPARIN SODIUM INJECTION [Suspect]
     Indication: INTRA-AORTIC BALLOON PLACEMENT
     Route: 065
     Dates: start: 20071219, end: 20071219
  3. HEPARIN SODIUM INJECTION [Suspect]
     Indication: CORONARY ARTERY BYPASS
     Route: 065
     Dates: start: 20071219, end: 20071219
  4. HEPARIN SODIUM INJECTION [Suspect]
     Indication: MITRAL VALVOTOMY
     Route: 065
     Dates: start: 20071219, end: 20071219
  5. HEPARIN SODIUM INJECTION [Suspect]
     Indication: CARDIAC ANEURYSM REPAIR
     Route: 065
     Dates: start: 20071219, end: 20071219
  6. HEPARIN SODIUM INJECTION [Suspect]
     Indication: VENTRICULAR REMODELING
     Route: 065
     Dates: start: 20071219, end: 20071219
  7. HEPARIN SODIUM INJECTION [Suspect]
     Route: 065
     Dates: start: 20071221, end: 20071221
  8. HEPARIN SODIUM INJECTION [Suspect]
     Route: 065
     Dates: start: 20071221, end: 20071221
  9. HEPARIN SODIUM INJECTION [Suspect]
     Route: 065
     Dates: start: 20071221, end: 20071221
  10. HEPARIN SODIUM INJECTION [Suspect]
     Route: 065
     Dates: start: 20071221, end: 20071221
  11. HEPARIN SODIUM INJECTION [Suspect]
     Route: 065
     Dates: start: 20071221, end: 20071221
  12. HEPARIN SODIUM INJECTION [Suspect]
     Route: 065
     Dates: start: 20071221, end: 20071221
  13. HEPARIN SODIUM INJECTION [Suspect]
     Route: 065
     Dates: start: 20071222, end: 20071222
  14. HEPARIN SODIUM INJECTION [Suspect]
     Route: 065
     Dates: start: 20071222, end: 20071222
  15. HEPARIN SODIUM INJECTION [Suspect]
     Route: 065
     Dates: start: 20071222, end: 20071222
  16. HEPARIN SODIUM INJECTION [Suspect]
     Route: 065
     Dates: start: 20071222, end: 20071222
  17. HEPARIN SODIUM INJECTION [Suspect]
     Route: 065
     Dates: start: 20071222, end: 20071222
  18. HEPARIN SODIUM INJECTION [Suspect]
     Route: 065
     Dates: start: 20071222, end: 20071222
  19. HEPARIN SODIUM INJECTION [Suspect]
     Route: 065
     Dates: start: 20080104, end: 20080104
  20. HEPARIN SODIUM INJECTION [Suspect]
     Route: 065
     Dates: start: 20080104, end: 20080104
  21. HEPARIN SODIUM INJECTION [Suspect]
     Route: 065
     Dates: start: 20080104, end: 20080104
  22. HEPARIN SODIUM INJECTION [Suspect]
     Route: 065
     Dates: start: 20080104, end: 20080104
  23. HEPARIN SODIUM INJECTION [Suspect]
     Route: 065
     Dates: start: 20080104, end: 20080104
  24. HEPARIN SODIUM INJECTION [Suspect]
     Route: 065
     Dates: start: 20080104, end: 20080104
  25. HEPARIN SODIUM INJECTION [Suspect]
     Route: 065
     Dates: start: 20080106, end: 20080106
  26. HEPARIN SODIUM INJECTION [Suspect]
     Route: 065
     Dates: start: 20080106, end: 20080106
  27. HEPARIN SODIUM INJECTION [Suspect]
     Route: 065
     Dates: start: 20080106, end: 20080106
  28. HEPARIN SODIUM INJECTION [Suspect]
     Route: 065
     Dates: start: 20080106, end: 20080106
  29. HEPARIN SODIUM INJECTION [Suspect]
     Route: 065
     Dates: start: 20080106, end: 20080106
  30. HEPARIN SODIUM INJECTION [Suspect]
     Route: 065
     Dates: start: 20080106, end: 20080106
  31. FLONASE [Concomitant]
     Indication: DRUG USE FOR UNKNOWN INDICATION
     Route: 065
  32. ATORVASTATIN CALCIUM [Concomitant]
     Indication: DRUG USE FOR UNKNOWN INDICATION
     Route: 065
  33. AMIODARONE [Concomitant]
     Indication: DRUG USE FOR UNKNOWN INDICATION
     Route: 065
  34. TRICOR [Concomitant]
     Indication: DRUG USE FOR UNKNOWN INDICATION
     Route: 065
  35. VASOTEC [Concomitant]
     Indication: DRUG USE FOR UNKNOWN INDICATION
     Route: 065
  36. ZANTAC [Concomitant]
     Indication: DRUG USE FOR UNKNOWN INDICATION
     Route: 065
  37. BISOPROLOL [Concomitant]
     Indication: DRUG USE FOR UNKNOWN INDICATION
     Route: 065
  38. WARFARIN SODIUM [Concomitant]
     Indication: DRUG USE FOR UNKNOWN INDICATION
     Route: 065
  39. EPLERENONE [Concomitant]
     Indication: DRUG USE FOR UNKNOWN INDICATION
     Route: 065

REACTIONS (12)
  - ANAEMIA [None]
  - CANDIDIASIS [None]
  - CARDIOGENIC SHOCK [None]
  - CORONARY ARTERY DISEASE [None]
  - HEPARIN-INDUCED THROMBOCYTOPENIA [None]
  - HYPOTENSION [None]
  - ISCHAEMIC CARDIOMYOPATHY [None]
  - MULTI-ORGAN FAILURE [None]
  - PNEUMONIA [None]
  - RENAL FAILURE ACUTE [None]
  - SYNCOPE [None]
  - SYSTEMIC INFLAMMATORY RESPONSE SYNDROME [None]
